FAERS Safety Report 4279820-2 (Version None)
Quarter: 2004Q1

REPORT INFORMATION
  Report Type: 
  Country: None (occurrence: None)
  Receive Date: 20040122
  Receipt Date: 20040115
  Transmission Date: 20041129
  Serious: Yes (Disabling)
  Sender: FDA-Public Use
  Company Number: GB-JNJFOC-20040100365

PATIENT
  Age: 85 Year
  Sex: Male
  Weight: 68 kg

DRUGS (6)
  1. DURAGESIC [Suspect]
     Indication: PAIN
     Dosage: 25 UG, 1 IN 3 DAY, TRANSDERMAL
     Route: 062
     Dates: start: 20031124, end: 20040105
  2. FUROSEMIDE [Concomitant]
  3. RANITIDINE [Concomitant]
  4. TEMAZEPAM [Concomitant]
  5. METOCLOPRAMIDE [Concomitant]
  6. PARACETAMOL (PARACETAMOL) [Concomitant]

REACTIONS (2)
  - DYSKINESIA [None]
  - MUSCLE SPASMS [None]
